FAERS Safety Report 9487127 (Version 1)
Quarter: 2013Q3

REPORT INFORMATION
  Report Type: Spontaneous
  Country: US (occurrence: US)
  Receive Date: 20130829
  Receipt Date: 20130829
  Transmission Date: 20140515
  Serious: Yes (Other)
  Sender: FDA-Public Use
  Company Number: US-BRACCO-009803

PATIENT
  Age: 59 Year
  Sex: Male
  Weight: 104 kg

DRUGS (6)
  1. MULTIHANCE [Suspect]
     Indication: NUCLEAR MAGNETIC RESONANCE IMAGING BRAIN
     Route: 042
     Dates: start: 20130826, end: 20130826
  2. INSULIN [Concomitant]
     Route: 058
  3. LIPITOR [Concomitant]
     Route: 048
  4. ACCUPRIL [Concomitant]
     Route: 048
  5. POTASSIUM [Concomitant]
     Route: 048
  6. HYDROCHLOROTHIAZIDE [Concomitant]
     Route: 048

REACTIONS (4)
  - Blood pressure increased [Recovered/Resolved]
  - Heart rate increased [Recovered/Resolved]
  - Hyperhidrosis [Recovered/Resolved]
  - Nausea [Recovered/Resolved]
